FAERS Safety Report 8910103 (Version 1)
Quarter: 2012Q4

REPORT INFORMATION
  Report Type: 
  Country: US (occurrence: US)
  Receive Date: 20121115
  Receipt Date: 20121115
  Transmission Date: 20130627
  Serious: Yes (Other)
  Sender: FDA-Public Use
  Company Number: US-JNJFOC-20121103865

PATIENT
  Sex: Female

DRUGS (2)
  1. REMICADE [Suspect]
     Indication: CROHN^S DISEASE
     Route: 042
  2. UNSPECIFIED BLOOD PRESSURE MEDS [Concomitant]
     Indication: HYPERTENSION
     Route: 065

REACTIONS (5)
  - Arthritis [Not Recovered/Not Resolved]
  - Infusion related reaction [Unknown]
  - Hypertension [Unknown]
  - Abdominal pain [Recovered/Resolved]
  - Chest pain [Recovered/Resolved]
